FAERS Safety Report 15831940 (Version 1)
Quarter: 2019Q1

REPORT INFORMATION
  Report Type: Spontaneous
  Country: ES (occurrence: ES)
  Receive Date: 20190116
  Receipt Date: 20190116
  Transmission Date: 20190417
  Serious: Yes (Other)
  Sender: FDA-Public Use
  Company Number: ES-ALKEM LABORATORIES LIMITED-ES-ALKEM-2018-10593

PATIENT
  Age: 50 Year
  Sex: Female

DRUGS (3)
  1. METOCLOPRAMIDE. [Suspect]
     Active Substance: METOCLOPRAMIDE
     Indication: VOMITING
  2. LINEZOLID. [Suspect]
     Active Substance: LINEZOLID
     Indication: STAPHYLOCOCCAL INFECTION
     Dosage: UNK
     Route: 065
  3. METOCLOPRAMIDE. [Suspect]
     Active Substance: METOCLOPRAMIDE
     Indication: NAUSEA
     Dosage: 10 MG, EVERY 8 HOUR
     Route: 065

REACTIONS (2)
  - Drug interaction [Unknown]
  - Serotonin syndrome [Recovering/Resolving]
